FAERS Safety Report 9573399 (Version 1)
Quarter: 2013Q3

REPORT INFORMATION
  Report Type: Spontaneous
  Country: BR (occurrence: None)
  Receive Date: 20130927
  Receipt Date: 20130927
  Transmission Date: 20140515
  Serious: Yes (Hospitalization)
  Sender: FDA-Public Use
  Company Number: DSU-2013-04590

PATIENT
  Age: 34 Year
  Sex: Male

DRUGS (1)
  1. OLMETEC [Suspect]
     Indication: BLOOD PRESSURE
     Dosage: 20 MG (40 MG, QD), PER ORAL
     Route: 048
     Dates: start: 20090814

REACTIONS (4)
  - Road traffic accident [None]
  - Lower limb fracture [None]
  - Pelvic fracture [None]
  - Wrong technique in drug usage process [None]
